FAERS Safety Report 18394527 (Version 1)
Quarter: 2020Q4

REPORT INFORMATION
  Report Type: Spontaneous
  Country: US (occurrence: US)
  Receive Date: 20201016
  Receipt Date: 20201016
  Transmission Date: 20210114
  Serious: Yes (Death, Hospitalization, Other)
  Sender: FDA-Public Use
  Company Number: US-GILEAD-2020-0499412

PATIENT
  Age: 72 Year
  Sex: Male
  Weight: 102.6 kg

DRUGS (19)
  1. DEXMEDETOMIDINE. [Concomitant]
     Active Substance: DEXMEDETOMIDINE
  2. VERAPAMIL [Concomitant]
     Active Substance: VERAPAMIL HYDROCHLORIDE
  3. REMDESIVIR. [Suspect]
     Active Substance: REMDESIVIR
     Dosage: 100 MG, QD
     Route: 042
     Dates: start: 20200924, end: 20200927
  4. ACETAMINOPHEN. [Concomitant]
     Active Substance: ACETAMINOPHEN
  5. ATORVASTATIN [Concomitant]
     Active Substance: ATORVASTATIN
  6. CLOPIDOGREL [Concomitant]
     Active Substance: CLOPIDOGREL BISULFATE
  7. ENOXAPARIN [Concomitant]
     Active Substance: ENOXAPARIN
  8. REMDESIVIR. [Suspect]
     Active Substance: REMDESIVIR
     Indication: COVID-19 PNEUMONIA
     Dosage: 200 MG, ONCE
     Route: 042
     Dates: start: 20200923, end: 20200923
  9. CHLORPHENIRAMINE [CHLORPHENAMINE] [Concomitant]
     Active Substance: CHLORPHENIRAMINE
  10. OXYMETAZOLINE [Concomitant]
     Active Substance: OXYMETAZOLINE
  11. BENZONATATE. [Concomitant]
     Active Substance: BENZONATATE
  12. LORAZEPAM. [Concomitant]
     Active Substance: LORAZEPAM
  13. METOPROLOL SUCCINATE. [Concomitant]
     Active Substance: METOPROLOL SUCCINATE
  14. ALBUTEROL [SALBUTAMOL] [Concomitant]
     Active Substance: ALBUTEROL
  15. HYDROCODONE [Concomitant]
     Active Substance: HYDROCODONE
  16. DEXAMETHASONE. [Concomitant]
     Active Substance: DEXAMETHASONE
  17. FAMOTIDINE. [Concomitant]
     Active Substance: FAMOTIDINE
  18. ONDANSETRON [Concomitant]
     Active Substance: ONDANSETRON
  19. DOCUSATE;SENNA [Concomitant]
     Active Substance: DOCUSATE\SENNOSIDES

REACTIONS (1)
  - Respiratory failure [Fatal]

NARRATIVE: CASE EVENT DATE: 20201004
